FAERS Safety Report 9756470 (Version 2)
Quarter: 2015Q1

REPORT INFORMATION
  Report Type: Spontaneous
  Country: US (occurrence: US)
  Receive Date: 20131213
  Receipt Date: 20150210
  Transmission Date: 20150721
  Serious: No
  Sender: FDA-Public Use
  Company Number: US-GLAXOSMITHKLINE-A1042425A

PATIENT

DRUGS (2)
  1. NICODERM CQ [Suspect]
     Active Substance: NICOTINE
     Indication: PRODUCT USED FOR UNKNOWN INDICATION
     Route: 065
     Dates: start: 201310
  2. NICODERM CQ [Suspect]
     Active Substance: NICOTINE
     Indication: EX-TOBACCO USER
     Dates: start: 20130910, end: 20130919

REACTIONS (9)
  - Pain in extremity [Unknown]
  - Application site reaction [Not Recovered/Not Resolved]
  - Hypersensitivity [Unknown]
  - Application site bruise [Not Recovered/Not Resolved]
  - Application site swelling [Not Recovered/Not Resolved]
  - Drug administration error [Unknown]
  - Application site erythema [Not Recovered/Not Resolved]
  - Fluid retention [Unknown]
  - Contusion [Unknown]

NARRATIVE: CASE EVENT DATE: 20130914
